FAERS Safety Report 14788746 (Version 1)
Quarter: 2018Q2

REPORT INFORMATION
  Report Type: Spontaneous
  Country: GB (occurrence: GB)
  Receive Date: 20180423
  Receipt Date: 20180423
  Transmission Date: 20180711
  Serious: Yes (Other)
  Sender: FDA-Public Use
  Company Number: GB-KADMON PHARMACEUTICALS, LLC-KAD-201804-01301

PATIENT
  Age: 21 Year
  Sex: Female
  Weight: 57.6 kg

DRUGS (12)
  1. METHYLPHENIDATE HYDROCHLORIDE. [Concomitant]
     Active Substance: METHYLPHENIDATE HYDROCHLORIDE
     Dosage: 108 MG
  2. VITAMIN D [Concomitant]
     Active Substance: CHOLECALCIFEROL
     Dosage: 3 DOSAGE FORMS
  3. CYCLIZINE [Concomitant]
     Active Substance: CYCLIZINE
     Dosage: 150 MG
  4. EXVIERA [Suspect]
     Active Substance: DASABUVIR
     Indication: CHRONIC HEPATITIS C
     Dosage: 2 DOSAGE FORMS
     Route: 048
     Dates: start: 20171007, end: 20171230
  5. CROTAMITON [Concomitant]
     Active Substance: CROTAMITON
     Dosage: 10%
     Route: 061
  6. VIEKIRAX [Suspect]
     Active Substance: OMBITASVIR\PARITAPREVIR\RITONAVIR
     Indication: CHRONIC HEPATITIS C
     Dosage: EXVIERA X1 TWICE A DAY, 2 DOSAGE FORMS
     Route: 048
     Dates: start: 20171007, end: 20171230
  7. SALBUTAMOL [Concomitant]
     Active Substance: ALBUTEROL
  8. INHALERS [Concomitant]
     Active Substance: UNSPECIFIED INGREDIENT
  9. BISACODYL. [Concomitant]
     Active Substance: BISACODYL
     Dosage: 5 MG
  10. BETAMETHASONE VALERATE. [Concomitant]
     Active Substance: BETAMETHASONE VALERATE
     Dosage: 0.1%
     Route: 061
  11. RIBAVIRIN. [Suspect]
     Active Substance: RIBAVIRIN
     Indication: CHRONIC HEPATITIS C
     Dosage: VIEKIRAX X2 DAILY. EXVIERA X1 TWICE A DAY, 400 MG
     Route: 048
     Dates: start: 20171007, end: 20171230
  12. FEXOFENADINE [Concomitant]
     Active Substance: FEXOFENADINE\FEXOFENADINE HYDROCHLORIDE
     Dosage: 180 MG

REACTIONS (2)
  - Ectopic pregnancy [Unknown]
  - Exposure during pregnancy [Unknown]
